FAERS Safety Report 8117779-8 (Version None)
Quarter: 2011Q4

REPORT INFORMATION
  Report Type: 
  Country: None (occurrence: None)
  Receive Date: 20111227
  Receipt Date: 20111025
  Transmission Date: 20120403
  Serious: No
  Sender: FDA-Public Use
  Company Number: PHEH2011US07744

PATIENT
  Age: 46 Year
  Sex: Female

DRUGS (8)
  1. ANTIHYPERTENSIVE DRUGS (NO INGREDIENTS/SUBSTANCES) [Concomitant]
  2. AMLODIPINE [Concomitant]
  3. ASPIRIN [Concomitant]
  4. PRILOSEC [Concomitant]
  5. GILENYA [Suspect]
     Dosage: 0.5 MG, QD, ORAL
     Route: 048
  6. VITAMIN D [Concomitant]
  7. CALCIUM AND ERGOCALCIFEROL (CALCIUM LACTATE, CALCIUM PHOSPHATE, ERGOCA [Concomitant]
  8. CELEXA [Concomitant]

REACTIONS (2)
  - GLOSSITIS [None]
  - DAYDREAMING [None]
